FAERS Safety Report 5107111-6 (Version None)
Quarter: 2006Q3

REPORT INFORMATION
  Report Type: 
  Country: None (occurrence: None)
  Receive Date: 20060913
  Receipt Date: 20060823
  Transmission Date: 20061208
  Serious: Yes (Death, Other)
  Sender: FDA-Public Use
  Company Number: US200608001790

PATIENT
  Age: 73 Year
  Sex: Male
  Weight: 136.1 kg

DRUGS (3)
  1. FORTEO [Suspect]
     Indication: OSTEOPOROSIS
     Dosage: 20 UG
     Dates: start: 20060101, end: 20060717
  2. FORTEO [Concomitant]
  3. WARFARIN SODIUM [Concomitant]

REACTIONS (15)
  - BACK PAIN [None]
  - COMA [None]
  - CONDITION AGGRAVATED [None]
  - HAEMOGLOBIN DECREASED [None]
  - IMPAIRED SELF-CARE [None]
  - INTERNATIONAL NORMALISED RATIO DECREASED [None]
  - LARGE INTESTINAL HAEMORRHAGE [None]
  - MALNUTRITION [None]
  - PLATELET COUNT INCREASED [None]
  - PROTHROMBIN TIME PROLONGED [None]
  - PULMONARY FIBROSIS [None]
  - RECTAL HAEMORRHAGE [None]
  - RHEUMATOID ARTHRITIS [None]
  - STRIDOR [None]
  - WHITE BLOOD CELL COUNT INCREASED [None]
